FAERS Safety Report 7850886-3 (Version None)
Quarter: 2011Q4

REPORT INFORMATION
  Report Type: 
  Country: None (occurrence: None)
  Receive Date: 20111024
  Receipt Date: 20111011
  Transmission Date: 20120403
  Serious: Yes (Hospitalization)
  Sender: FDA-Public Use
  Company Number: AXC-2011-000437

PATIENT
  Age: 80 Year
  Sex: Male

DRUGS (17)
  1. BLOPRESS (CANDESARTAN CILEXETIL) [Concomitant]
  2. FORSENID /00571901/(SENNOSIDE A+B) [Concomitant]
  3. ASPIRIN [Concomitant]
  4. ADETPHOS (ADENOSINE TRIPHOSPHATE, DISODIUM SALT) [Concomitant]
  5. DILTIAZEM HYDROCHLORIDE [Concomitant]
  6. URSODIOL [Suspect]
     Indication: CHOLELITHIASIS
     Dosage: 200 MG, QD, ORAL
     Route: 048
     Dates: end: 20110825
  7. ALLOPURINOL [Suspect]
     Indication: PAIN
     Dosage: 100 MG, QD, ORAL
     Route: 048
     Dates: start: 20110826, end: 20110926
  8. LOXONIN /00890702/ (LOXOPROFEN SODIUM) [Concomitant]
  9. VIBRAMYCIN /00055701/ (DOXYCYCLINE) [Concomitant]
  10. LANSOPRAZOLE [Concomitant]
  11. MUCOSTA (REBAMIPIDE) [Concomitant]
  12. DIAZEPAM [Concomitant]
  13. MERISLON /00141802/ (BETAHISTINE HYDROCHLORIDE) [Concomitant]
  14. TAMSULOSIN HYDROCHLORIDE [Concomitant]
  15. LEVOFLOXACIN [Suspect]
     Indication: PRODUCT USED FOR UNKNOWN INDICATION
     Dosage: 500 MG, QD, ORAL
     Route: 048
     Dates: end: 20110825
  16. MAGLAX (MAGNESIUM OXIDE) [Concomitant]
  17. TRINOSIN (ADENOSINE TRIPHOSPHATE, DISODIUM SALT) [Concomitant]

REACTIONS (1)
  - INTERSTITIAL LUNG DISEASE [None]
